FAERS Safety Report 4628921-5 (Version None)
Quarter: 2005Q2

REPORT INFORMATION
  Report Type: 
  Country: None (occurrence: None)
  Receive Date: 20050406
  Receipt Date: 20050323
  Transmission Date: 20051028
  Serious: Yes (Hospitalization, Other)
  Sender: FDA-Public Use
  Company Number: 2005041953

PATIENT
  Age: 74 Year
  Sex: Female

DRUGS (18)
  1. TIKOSYN [Suspect]
     Indication: CARDIAC FAILURE CONGESTIVE
     Dosage: 500 MCG (250 MCG, BID MCG, BID INTERVAL:  EVERY DAY), ORAL
     Route: 048
     Dates: start: 20030901
  2. STEROID ANTIBACTERIALS (STEROID ANTIBACTERIALS) [Concomitant]
  3. IRBESARTAN [Concomitant]
  4. PANTOPRAZOLE (PANTOPRAZOLE) [Concomitant]
  5. POTASSIUM ACETATE [Concomitant]
  6. MICONAZOLE [Concomitant]
  7. SPIRONOLACTONE [Concomitant]
  8. ATENOLOL [Concomitant]
  9. SOLIFENACIN SUCCINATE (SOLIFENACIN SUCCINATE) [Concomitant]
  10. ENALAPRIL MALEATE [Concomitant]
  11. FUROSEMIDE [Concomitant]
  12. DIGOXIN [Concomitant]
  13. WARFARIN SODIUM [Concomitant]
  14. VITAMINS, OTHER COMBINATIONS (VITAMINS, OTHER COMBINATIONS) [Concomitant]
  15. BIOFLAVONOIDS (BIOFLAVONOIDS) [Concomitant]
  16. ASCORUTIN (ASCORBIC ACID, RUTOSIDE) [Concomitant]
  17. METRONIDAZOLE [Concomitant]
  18. AMLODIPINE BESYLATE [Concomitant]

REACTIONS (7)
  - ATRIAL FLUTTER [None]
  - CARDIAC FAILURE CONGESTIVE [None]
  - CHRONIC OBSTRUCTIVE AIRWAYS DISEASE EXACERBATED [None]
  - DIARRHOEA [None]
  - DRUG INTERACTION [None]
  - URINARY TRACT INFECTION [None]
  - WEIGHT INCREASED [None]
